FAERS Safety Report 17535832 (Version 2)
Quarter: 2020Q4

REPORT INFORMATION
  Report Type: Report from Study
  Country: None (occurrence: US)
  Receive Date: 20200313
  Receipt Date: 20201113
  Transmission Date: 20210113
  Serious: Yes (Hospitalization)
  Sender: FDA-Public Use
  Company Number: US-ABBVIE-20K-163-3317145-00

PATIENT
  Age: 39 Year
  Sex: Female

DRUGS (2)
  1. HUMIRA [Suspect]
     Active Substance: ADALIMUMAB
     Indication: RHEUMATOID ARTHRITIS
     Route: 058
     Dates: start: 20190819, end: 20200202
  2. HUMIRA [Suspect]
     Active Substance: ADALIMUMAB
     Route: 058
     Dates: start: 20201108

REACTIONS (7)
  - Back pain [Recovering/Resolving]
  - Rheumatoid arthritis [Recovered/Resolved]
  - Ligament sprain [Recovering/Resolving]
  - Pulmonary thrombosis [Not Recovered/Not Resolved]
  - Pneumonia [Unknown]
  - Pain in extremity [Recovering/Resolving]
  - Walking aid user [Recovering/Resolving]

NARRATIVE: CASE EVENT DATE: 2020
